FAERS Safety Report 8116681-5 (Version None)
Quarter: 2012Q1

REPORT INFORMATION
  Report Type: 
  Country: None (occurrence: None)
  Receive Date: 20120206
  Receipt Date: 20120124
  Transmission Date: 20120608
  Serious: Yes (Other)
  Sender: FDA-Public Use
  Company Number: PHHY2012MX006470

PATIENT
  Age: 66 Year
  Sex: Female

DRUGS (3)
  1. NORFENON [Concomitant]
     Indication: ARRHYTHMIA
     Dosage: 2 DF, UNK
     Dates: start: 20111201
  2. DIOVAN [Suspect]
     Indication: HYPERTENSION
     Dosage: 320 MG, DAILY
     Dates: start: 20111201
  3. ADALAT [Concomitant]
     Indication: BLOOD PRESSURE ABNORMAL
     Dosage: 2 DF, DAILY

REACTIONS (6)
  - ARRHYTHMIA [None]
  - BLOOD GLUCOSE INCREASED [None]
  - HYPOKINESIA [None]
  - MUSCULOSKELETAL STIFFNESS [None]
  - SENSE OF OPPRESSION [None]
  - BLOOD PRESSURE INCREASED [None]
